FAERS Safety Report 9036581 (Version 1)
Quarter: 2013Q1

REPORT INFORMATION
  Report Type: Spontaneous
  Country: US (occurrence: None)
  Receive Date: 20130117
  Receipt Date: 20130117
  Transmission Date: 20140127
  Serious: Yes (Other)
  Sender: FDA-Public Use
  Company Number: None

PATIENT
  Age: 87 Year
  Sex: Female
  Weight: 86.18 kg

DRUGS (1)
  1. CARVEDILOL 25MG [Suspect]
     Indication: HYPERTENSION
     Dosage: 25 MG 2 DAILY
     Dates: start: 20130109, end: 20130115

REACTIONS (1)
  - Diarrhoea [None]
